FAERS Safety Report 6106701-1 (Version None)
Quarter: 2009Q1

REPORT INFORMATION
  Report Type: 
  Country: None (occurrence: None)
  Receive Date: 20090305
  Receipt Date: 20090223
  Transmission Date: 20090719
  Serious: Yes (Other)
  Sender: FDA-Public Use
  Company Number: 2009AP000665

PATIENT
  Age: 59 Year
  Sex: Male

DRUGS (1)
  1. SELEGILINE HCL [Suspect]
     Dosage: PO
     Route: 048

REACTIONS (3)
  - DYSKINESIA [None]
  - PSYCHOMOTOR HYPERACTIVITY [None]
  - THERAPEUTIC RESPONSE UNEXPECTED [None]
